FAERS Safety Report 10020592 (Version 2)
Quarter: 2014Q2

REPORT INFORMATION
  Report Type: Report from Study
  Country: BR (occurrence: BR)
  Receive Date: 20140319
  Receipt Date: 20140523
  Transmission Date: 20141212
  Serious: Yes (Hospitalization, Other)
  Sender: FDA-Public Use
  Company Number: PHHY2014BR031542

PATIENT
  Sex: Female
  Weight: 71 kg

DRUGS (2)
  1. DIOVAN AMLO FIX [Suspect]
     Indication: HYPERTENSION
     Dosage: 1 DF (VALS 160 MG, AMLO 5 MG), QD (IN THE MORNING)
     Route: 048
  2. SIMVASTATIN [Concomitant]
     Indication: BLOOD CHOLESTEROL ABNORMAL
     Dosage: UNK UKN, UNK

REACTIONS (8)
  - Cerebrovascular accident [Not Recovered/Not Resolved]
  - Deafness [Not Recovered/Not Resolved]
  - Aphasia [Not Recovered/Not Resolved]
  - Hemiplegia [Not Recovered/Not Resolved]
  - Movement disorder [Not Recovered/Not Resolved]
  - Abasia [Not Recovered/Not Resolved]
  - Diabetes mellitus [Unknown]
  - Functional gastrointestinal disorder [Not Recovered/Not Resolved]
